FAERS Safety Report 6730161-0 (Version None)
Quarter: 2010Q2

REPORT INFORMATION
  Report Type: 
  Country: None (occurrence: None)
  Receive Date: 20100518
  Receipt Date: 20100506
  Transmission Date: 20101027
  Serious: Yes (Hospitalization)
  Sender: FDA-Public Use
  Company Number: US-ELI_LILLY_AND_COMPANY-US200610002121

PATIENT
  Sex: Female
  Weight: 15.4 kg

DRUGS (5)
  1. SOMATROPIN [Suspect]
     Indication: TURNER'S SYNDROME
     Dates: start: 20010731, end: 20020328
  2. SOMATROPIN [Suspect]
     Dosage: 0.8 MG, DAILY (1/D)
     Route: 058
     Dates: start: 20060612, end: 20060615
  3. SOMATROPIN [Suspect]
     Dosage: 0.8 MG, DAILY (1/D)
     Route: 058
     Dates: start: 20061016
  4. CLARITIN                                /USA/ [Concomitant]
     Indication: SEASONAL ALLERGY
     Dates: start: 20040101
  5. NASACORT [Concomitant]
     Indication: SEASONAL ALLERGY
     Dates: start: 20040101

REACTIONS (1)
  - GANGLIONEUROBLASTOMA [None]
